FAERS Safety Report 10052100 (Version 1)
Quarter: 2014Q2

REPORT INFORMATION
  Report Type: Spontaneous
  Country: US (occurrence: US)
  Receive Date: 20140402
  Receipt Date: 20140402
  Transmission Date: 20141212
  Serious: Yes (Hospitalization)
  Sender: FDA-Public Use
  Company Number: US-ASTRAZENECA-2014SE21495

PATIENT
  Age: 69 Year
  Sex: Female
  Weight: 78.9 kg

DRUGS (16)
  1. LISINOPRIL [Suspect]
     Indication: HYPERTENSION
     Route: 048
     Dates: start: 2010
  2. PRILOSEC [Suspect]
     Indication: GASTRIC DISORDER
     Route: 048
     Dates: start: 2013, end: 20140301
  3. PRILOSEC [Suspect]
     Indication: DYSPEPSIA
     Route: 048
     Dates: start: 2013, end: 20140301
  4. NEXIUM [Suspect]
     Indication: GASTROOESOPHAGEAL REFLUX DISEASE
     Route: 048
     Dates: start: 201403
  5. LIPITOR [Concomitant]
     Indication: BLOOD CHOLESTEROL INCREASED
     Route: 048
     Dates: end: 201401
  6. LIPITOR [Concomitant]
     Indication: BLOOD CHOLESTEROL INCREASED
     Route: 048
     Dates: start: 201401
  7. LEVOTHORINE [Concomitant]
     Indication: BLOOD CHOLESTEROL ABNORMAL
     Route: 048
     Dates: start: 2011
  8. ISORBID [Concomitant]
     Indication: CARDIAC DISORDER
     Route: 048
     Dates: start: 201301
  9. VITAMIN D [Concomitant]
     Indication: VITAMIN SUPPLEMENTATION
     Dosage: 50,000 MG WEEK
     Route: 048
     Dates: start: 2013
  10. MORPHINE SULFATE [Concomitant]
     Indication: BACK PAIN
     Route: 048
     Dates: start: 2012
  11. TRAMADOL [Concomitant]
     Indication: BACK PAIN
     Dosage: 50 MG AS NEEDED PRN
     Route: 048
     Dates: start: 201310
  12. EULERA [Concomitant]
     Indication: ASTHMA
     Dosage: 2 PUFFS BID
     Route: 048
     Dates: start: 2013
  13. COMBIVENT [Concomitant]
     Indication: ASTHMA
     Dosage: 2 PUFFS PRN
     Route: 048
     Dates: start: 2009
  14. ALBUTEROL/IAPROTROIUM BY MACHINE [Concomitant]
     Indication: ASTHMA
     Dosage: 1 VIAL PRN
  15. VOLTAREN [Concomitant]
     Indication: BACK PAIN
     Dosage: PRN
     Route: 048
     Dates: start: 201310
  16. MALANA [Concomitant]
     Indication: GASTROOESOPHAGEAL REFLUX DISEASE
     Dosage: PRN
     Route: 048
     Dates: start: 2002

REACTIONS (11)
  - Arteriospasm coronary [Unknown]
  - Gastritis [Unknown]
  - Weight decreased [Unknown]
  - Type 2 diabetes mellitus [Unknown]
  - Blood cholesterol abnormal [Unknown]
  - Blood glucose abnormal [Unknown]
  - Mobility decreased [Unknown]
  - Chest pain [Unknown]
  - Arterial spasm [Unknown]
  - Colitis [Unknown]
  - Malaise [Unknown]
